FAERS Safety Report 18197008 (Version 1)
Quarter: 2020Q3

REPORT INFORMATION
  Report Type: Spontaneous
  Country: US (occurrence: US)
  Receive Date: 20200825
  Receipt Date: 20200825
  Transmission Date: 20201103
  Serious: Yes (Hospitalization)
  Sender: FDA-Public Use
  Company Number: None

PATIENT
  Sex: Male

DRUGS (31)
  1. HYDROCO/APAP [Concomitant]
     Active Substance: ACETAMINOPHEN\HYDROCODONE
  2. BENZONATATE. [Concomitant]
     Active Substance: BENZONATATE
  3. METOPROL TAR [Concomitant]
  4. MONTELUKAST [Concomitant]
     Active Substance: MONTELUKAST SODIUM
  5. VORICONAZOLE. [Concomitant]
     Active Substance: VORICONAZOLE
  6. MUPIROCIN. [Concomitant]
     Active Substance: MUPIROCIN
  7. MYCOPHENOLAT [Concomitant]
     Active Substance: MYCOPHENOLATE MOFETIL
  8. NYSTAT/TRIAM CRE [Concomitant]
  9. NYSTOP [Concomitant]
     Active Substance: NYSTATIN
  10. PREDNISONE. [Concomitant]
     Active Substance: PREDNISONE
  11. SMZ/TMP DS [Concomitant]
     Active Substance: SULFAMETHOXAZOLE\TRIMETHOPRIM
  12. VALGANCICLOV [Concomitant]
  13. ESBRIET [Suspect]
     Active Substance: PIRFENIDONE
     Indication: IDIOPATHIC PULMONARY FIBROSIS
     Route: 048
     Dates: start: 20200605
  14. AZITHROMYCIN ANHYDROUS. [Concomitant]
     Active Substance: AZITHROMYCIN ANHYDROUS
  15. DICLOFENAC [Concomitant]
     Active Substance: DICLOFENAC
  16. PRAMIPEXOLE. [Concomitant]
     Active Substance: PRAMIPEXOLE
  17. CEFADROXIL. [Concomitant]
     Active Substance: CEFADROXIL
  18. FLUDORCORT [Concomitant]
  19. FUROSEMIDE. [Concomitant]
     Active Substance: FUROSEMIDE
  20. GABAPENTIN. [Concomitant]
     Active Substance: GABAPENTIN
  21. OLMESA MEDOX [Concomitant]
  22. ALENDRONATE [Concomitant]
     Active Substance: ALENDRONATE SODIUM
  23. MELOXICAM. [Concomitant]
     Active Substance: MELOXICAM
  24. OLM MED/HCTZ [Concomitant]
  25. TACROLIMUS. [Concomitant]
     Active Substance: TACROLIMUS
  26. TAMSULOSIN [Concomitant]
     Active Substance: TAMSULOSIN
  27. INSULIN ASPA FLEXPEN [Concomitant]
  28. TERBINAFINE. [Concomitant]
     Active Substance: TERBINAFINE
  29. TRAMADOL HCL [Concomitant]
     Active Substance: TRAMADOL HYDROCHLORIDE
  30. ASPIRIN EC [Concomitant]
     Active Substance: ASPIRIN
  31. LOSARTAN POT [Concomitant]
     Active Substance: LOSARTAN POTASSIUM

REACTIONS (1)
  - Lung transplant [None]
